FAERS Safety Report 8697242 (Version 2)
Quarter: 2012Q4

REPORT INFORMATION
  Report Type: 
  Country: CO (occurrence: CO)
  Receive Date: 20120801
  Receipt Date: 20120925
  Transmission Date: 20130627
  Serious: Yes (Other)
  Sender: FDA-Public Use
  Company Number: CO-PFIZER INC-2012185733

PATIENT
  Age: 14 Year
  Sex: Female

DRUGS (4)
  1. GENOTROPIN [Suspect]
     Indication: GROWTH RETARDATION
     Dosage: 1.8 mg, 1x/day
     Route: 058
     Dates: start: 2009
  2. ATEMPERATOR [Concomitant]
     Indication: CONVULSION
     Dosage: 200 mg, twice every third day
     Dates: start: 2008
  3. ATEMPERATOR [Concomitant]
     Indication: EPILEPSY
  4. FLUOXETINE [Concomitant]
     Indication: DEPRESSION
     Dosage: 20 mg, 1x/day
     Dates: start: 201206

REACTIONS (5)
  - Fibromatosis [Recovered/Resolved]
  - Off label use [Unknown]
  - Injection site pain [Not Recovered/Not Resolved]
  - Injection site nodule [Not Recovered/Not Resolved]
  - Injection site swelling [Not Recovered/Not Resolved]
